FAERS Safety Report 7643643-4 (Version None)
Quarter: 2011Q3

REPORT INFORMATION
  Report Type: 
  Country: None (occurrence: None)
  Receive Date: 20110729
  Receipt Date: 20110726
  Transmission Date: 20111222
  Serious: Yes (Hospitalization)
  Sender: FDA-Public Use
  Company Number: PHHY2011TR51633

PATIENT
  Sex: Female
  Weight: 13.5 kg

DRUGS (2)
  1. EXJADE [Suspect]
     Indication: THALASSAEMIA BETA
     Dosage: 250 MG, QD
     Route: 048
     Dates: start: 20090101
  2. EXJADE [Suspect]
     Indication: IRON OVERLOAD

REACTIONS (2)
  - PARAESTHESIA [None]
  - RASH [None]
